FAERS Safety Report 19391180 (Version 2)
Quarter: 2022Q4

REPORT INFORMATION
  Report Type: Report from Study
  Country: CA (occurrence: CA)
  Receive Date: 20210609
  Receipt Date: 20221116
  Transmission Date: 20230112
  Serious: Yes (Other)
  Sender: FDA-Public Use
  Company Number: CA-ABBVIE-21K-028-3939255-00

PATIENT
  Age: 78 Year
  Sex: Female

DRUGS (2)
  1. RINVOQ [Suspect]
     Active Substance: UPADACITINIB
     Indication: Rheumatoid arthritis
     Route: 048
     Dates: start: 20200403, end: 20210505
  2. RINVOQ [Suspect]
     Active Substance: UPADACITINIB
     Indication: Rheumatoid arthritis
     Route: 048
     Dates: start: 20210530

REACTIONS (2)
  - Cardiac operation [Unknown]
  - Blood pressure abnormal [Unknown]

NARRATIVE: CASE EVENT DATE: 20210501
